FAERS Safety Report 8919918 (Version 1)
Quarter: 2012Q4

REPORT INFORMATION
  Report Type: 
  Country: FR (occurrence: FR)
  Receive Date: 20121121
  Receipt Date: 20121121
  Transmission Date: 20130627
  Serious: Yes (Other)
  Sender: FDA-Public Use
  Company Number: FR-ACCORD-015296

PATIENT
  Age: 15 Year
  Sex: Male

DRUGS (4)
  1. LEVETIRACETAM [Suspect]
     Indication: SEIZURES
     Route: 048
  2. ONDANSETRON [Concomitant]
     Indication: VOMITING
  3. METOPIMAZINE [Concomitant]
     Indication: VOMITING
  4. METHOTREXATE [Interacting]
     Indication: ACUTE LYMPHOBLASTIC LEUKEMIA
     Dosage: Patient also received high dose MTX infusion (5 g/m2/24 hours)
     Route: 037

REACTIONS (6)
  - Convulsion [Unknown]
  - Drug interaction [Unknown]
  - Vomiting [Unknown]
  - Renal failure [Recovered/Resolved]
  - Hypertension [Unknown]
  - Drug level increased [Recovering/Resolving]
